FAERS Safety Report 6075368-3 (Version None)
Quarter: 2009Q1

REPORT INFORMATION
  Report Type: 
  Country: None (occurrence: None)
  Receive Date: 20090212
  Receipt Date: 20080328
  Transmission Date: 20090719
  Serious: No
  Sender: FDA-Public Use
  Company Number: US-BAUSCH-2008BL001403

PATIENT
  Age: 5 Year
  Sex: Male
  Weight: 15 kg

DRUGS (6)
  1. FLUNISOLIDE NASAL SOLUTION USP 0.025% [Suspect]
     Indication: HYPERSENSITIVITY
     Route: 045
     Dates: start: 20080128
  2. ADDERALL XR 20 [Concomitant]
     Indication: ATTENTION DEFICIT/HYPERACTIVITY DISORDER
     Route: 048
     Dates: start: 20060928
  3. FLOVENT [Concomitant]
     Indication: ASTHMA
     Route: 049
     Dates: start: 20050928
  4. ALBUTEROL [Concomitant]
     Indication: ASTHMA
     Route: 049
     Dates: start: 20050928
  5. MULTI-VITAMINS [Concomitant]
     Indication: VITAMIN SUPPLEMENTATION
  6. TAMIFLU /SCH/ [Concomitant]
     Indication: INFLUENZA IMMUNISATION
     Route: 048
     Dates: start: 20080321

REACTIONS (2)
  - EPISTAXIS [None]
  - FACE INJURY [None]
